FAERS Safety Report 6902450-8 (Version None)
Quarter: 2010Q3

REPORT INFORMATION
  Report Type: 
  Country: None (occurrence: None)
  Receive Date: 20100803
  Receipt Date: 20080524
  Transmission Date: 20110219
  Serious: Yes (Other)
  Sender: FDA-Public Use
  Company Number: US-PFIZER INC-2008044775

PATIENT
  Sex: Female
  Weight: 73 kg

DRUGS (5)
  1. LYRICA [Suspect]
     Indication: FIBROMYALGIA
     Route: 048
     Dates: start: 20070801
  2. VERAPAMIL [Concomitant]
  3. ACIPHEX [Concomitant]
  4. MIRALAX [Concomitant]
  5. LAXATIVES [Concomitant]

REACTIONS (6)
  - ANGER [None]
  - DIZZINESS [None]
  - FEELING OF BODY TEMPERATURE CHANGE [None]
  - MOOD ALTERED [None]
  - VERTIGO [None]
  - WEIGHT INCREASED [None]
